FAERS Safety Report 21103929 (Version 1)
Quarter: 2022Q3

REPORT INFORMATION
  Report Type: Spontaneous
  Country: US (occurrence: None)
  Receive Date: 20220719
  Receipt Date: 20220719
  Transmission Date: 20221026
  Serious: No
  Sender: FDA-Public Use
  Company Number: None

PATIENT
  Age: 81 Year
  Sex: Female
  Weight: 74.39 kg

DRUGS (32)
  1. MEKINIST [Suspect]
     Active Substance: TRAMETINIB DIMETHYL SULFOXIDE
     Indication: Metastasis
     Dosage: FREQUENCY : DAILY;?
     Route: 048
     Dates: start: 202205
  2. amLODIPine-Valsartan-HCTZ [Concomitant]
  3. BISACODYL [Concomitant]
     Active Substance: BISACODYL
  4. BYSTOLIC [Concomitant]
     Active Substance: NEBIVOLOL HYDROCHLORIDE
  5. CALAN [Concomitant]
     Active Substance: VERAPAMIL HYDROCHLORIDE
  6. CELEBREX [Concomitant]
     Active Substance: CELECOXIB
  7. DAILY-VITE [Concomitant]
  8. DEXAMETHASONE [Concomitant]
     Active Substance: DEXAMETHASONE
  9. DIOVAN HCT [Concomitant]
     Active Substance: HYDROCHLOROTHIAZIDE\VALSARTAN
  10. FERROUS SULFATE [Concomitant]
     Active Substance: FERROUS SULFATE
  11. FreeStyle Lite Test [Concomitant]
  12. GABAPENTIN [Concomitant]
     Active Substance: GABAPENTIN
  13. HUMALOG [Concomitant]
     Active Substance: INSULIN LISPRO
  14. HYDROMORPHONE HCL [Concomitant]
     Active Substance: HYDROMORPHONE HYDROCHLORIDE
  15. HYZAAR [Concomitant]
     Active Substance: HYDROCHLOROTHIAZIDE\LOSARTAN POTASSIUM
  16. IBUPROFEN [Concomitant]
     Active Substance: IBUPROFEN
  17. KEPPRA [Concomitant]
     Active Substance: LEVETIRACETAM
  18. LANTUS [Concomitant]
     Active Substance: INSULIN GLARGINE
  19. LIDOCAINE [Concomitant]
     Active Substance: LIDOCAINE
  20. LOTREL [Concomitant]
     Active Substance: AMLODIPINE BESYLATE\BENAZEPRIL HYDROCHLORIDE
  21. LOTRIMIN AF ANTIFUNGAL [Concomitant]
     Active Substance: MICONAZOLE NITRATE
  22. LOTRISONE [Concomitant]
     Active Substance: BETAMETHASONE DIPROPIONATE\CLOTRIMAZOLE
  23. MELATONIN [Concomitant]
     Active Substance: MELATONIN
  24. Multivitamins/Minerals Adult [Concomitant]
  25. SODIUM CHLORIDE [Concomitant]
     Active Substance: SODIUM CHLORIDE
  26. PEPCID [Concomitant]
     Active Substance: FAMOTIDINE
  27. PREDNISONE [Concomitant]
     Active Substance: PREDNISONE
  28. PRILOSEC OTC [Concomitant]
     Active Substance: OMEPRAZOLE MAGNESIUM
  29. TRAMADOL HCL [Concomitant]
     Active Substance: TRAMADOL HYDROCHLORIDE
  30. VASCEPA [Concomitant]
     Active Substance: ICOSAPENT ETHYL
  31. Vitamin E Complex [Concomitant]
  32. ZOFRAN [Concomitant]
     Active Substance: ONDANSETRON HYDROCHLORIDE

REACTIONS (2)
  - Drug ineffective [None]
  - Therapy cessation [None]
